FAERS Safety Report 8430037-7 (Version None)
Quarter: 2012Q2

REPORT INFORMATION
  Report Type: 
  Country: None (occurrence: None)
  Receive Date: 20120612
  Receipt Date: 20120529
  Transmission Date: 20120825
  Serious: Yes (Other)
  Sender: FDA-Public Use
  Company Number: PT-ROCHE-1073595

PATIENT
  Age: 48 Year
  Sex: Female

DRUGS (8)
  1. PACLITAXEL [Suspect]
     Indication: ENDOMETRIAL CANCER
     Dates: start: 20110501
  2. CLOMIPRAMINE HCL [Concomitant]
  3. AVASTIN [Suspect]
     Indication: ENDOMETRIAL CANCER
     Dates: start: 20101001
  4. AMITRIPTYLINE HCL [Concomitant]
  5. DOXORUBICIN HYDROCHLORIDE [Suspect]
     Indication: ENDOMETRIAL CANCER
     Dates: start: 20110501
  6. GEMCITABINE [Suspect]
     Indication: ENDOMETRIAL CANCER
     Dates: start: 20110901
  7. CARBOPLATIN [Suspect]
     Indication: ENDOMETRIAL CANCER
     Dates: start: 20110901
  8. ALPRAZOLAM [Concomitant]

REACTIONS (1)
  - DISEASE PROGRESSION [None]
